FAERS Safety Report 8086765-9 (Version None)
Quarter: 2012Q1

REPORT INFORMATION
  Report Type: 
  Country: None (occurrence: None)
  Receive Date: 20120128
  Receipt Date: 20110614
  Transmission Date: 20120608
  Serious: No
  Sender: FDA-Public Use
  Company Number: US-ABBOTT-11P-163-0732077-00

PATIENT
  Sex: Female

DRUGS (13)
  1. GUANFACINE HYDROCHLORIDE [Concomitant]
     Indication: ANXIETY
  2. CALCIUM WITH VITAMIN D [Concomitant]
     Indication: PRODUCT USED FOR UNKNOWN INDICATION
  3. ABILIFY [Concomitant]
     Indication: BIPOLAR DISORDER
  4. AZATHIOPRINE [Concomitant]
     Indication: RHEUMATOID ARTHRITIS
  5. PREMARIN [Concomitant]
     Indication: HORMONE REPLACEMENT THERAPY
  6. SAVELLA [Concomitant]
     Indication: FIBROMYALGIA
  7. HUMIRA [Suspect]
     Indication: RHEUMATOID ARTHRITIS
     Route: 058
     Dates: start: 20110602
  8. LISINOPRIL [Concomitant]
     Indication: HYPERTENSION
  9. RANITIDINE [Concomitant]
     Indication: GASTROOESOPHAGEAL REFLUX DISEASE
  10. PREDNISONE TAB [Concomitant]
     Indication: RHEUMATOID ARTHRITIS
  11. GUANFACINE HYDROCHLORIDE [Concomitant]
     Indication: ATTENTION DEFICIT/HYPERACTIVITY DISORDER
  12. METOPROLOL TARTRATE [Concomitant]
     Indication: TACHYCARDIA
  13. ASPIRIN [Concomitant]
     Indication: PRODUCT USED FOR UNKNOWN INDICATION

REACTIONS (1)
  - SEASONAL ALLERGY [None]
